FAERS Safety Report 6173076-1 (Version None)
Quarter: 2009Q2

REPORT INFORMATION
  Report Type: 
  Country: None (occurrence: None)
  Receive Date: 20090424
  Receipt Date: 20090126
  Transmission Date: 20091009
  Serious: No
  Sender: FDA-Public Use
  Company Number: ALL1-2009-00196

PATIENT
  Age: 46 Year
  Sex: Female

DRUGS (6)
  1. VYVANSE [Suspect]
     Indication: ATTENTION DEFICIT/HYPERACTIVITY DISORDER
     Dosage: 70 MG, 1X/DAY QD, ORAL
     Route: 048
  2. WELLBUTRIN [Concomitant]
  3. CYMBALTA [Concomitant]
  4. KLONOPIN [Concomitant]
  5. BISOPROLOL HCTAD (BISOPROLOL FUMARATE, HYDROCHLOROTHIAZIDE) [Concomitant]
  6. TRAZODONE HCL [Concomitant]

REACTIONS (3)
  - DRY MOUTH [None]
  - PAIN IN EXTREMITY [None]
  - VISION BLURRED [None]
